FAERS Safety Report 8418910-7 (Version None)
Quarter: 2012Q2

REPORT INFORMATION
  Report Type: 
  Country: None (occurrence: None)
  Receive Date: 20120607
  Receipt Date: 20120531
  Transmission Date: 20120825
  Serious: Yes (Death, Hospitalization)
  Sender: FDA-Public Use
  Company Number: DE-ROCHE-1074632

PATIENT
  Sex: Female
  Weight: 79 kg

DRUGS (2)
  1. PEGASYS [Suspect]
     Indication: HEPATITIS C
     Route: 058
     Dates: start: 20120113, end: 20120518
  2. COPEGUS [Suspect]
     Indication: HEPATITIS C
     Route: 065

REACTIONS (1)
  - ENDOCARDITIS [None]
